FAERS Safety Report 7520063-4 (Version None)
Quarter: 2011Q2

REPORT INFORMATION
  Report Type: 
  Country: None (occurrence: None)
  Receive Date: 20110602
  Receipt Date: 20110601
  Transmission Date: 20111010
  Serious: Yes (Other)
  Sender: FDA-Public Use
  Company Number: JP-PFIZER INC-2011113559

PATIENT
  Age: 77 Year
  Sex: Female

DRUGS (8)
  1. RABEPRAZOLE SODIUM [Suspect]
     Dosage: 10 MG/DAY
     Route: 048
  2. LYRICA [Suspect]
     Indication: BACK PAIN
     Dosage: 150 MG/DAY
     Route: 048
     Dates: start: 20101101
  3. KETOPROFEN [Suspect]
     Dosage: UNK
     Route: 061
  4. CELECOXIB [Suspect]
     Dosage: 200 MG/DAY
     Route: 048
  5. OPALMON [Suspect]
     Dosage: 5 UG/DAY
     Route: 048
  6. ASPARA-CA [Suspect]
     Dosage: 200 MG/DAY
     Route: 048
  7. ACTONEL [Suspect]
     Dosage: 17.5 MG/WEEK
     Route: 048
  8. VOLTAREN [Suspect]
     Dosage: UNK
     Route: 061

REACTIONS (2)
  - LOSS OF CONSCIOUSNESS [None]
  - SOMNOLENCE [None]
